FAERS Safety Report 23260131 (Version 1)
Quarter: 2023Q4

REPORT INFORMATION
  Report Type: Spontaneous
  Country: JP (occurrence: JP)
  Receive Date: 20231204
  Receipt Date: 20231204
  Transmission Date: 20240110
  Serious: Yes (Hospitalization)
  Sender: FDA-Public Use
  Company Number: JP-002147023-NVSJ2023JP016342

PATIENT

DRUGS (1)
  1. ENTRESTO [Suspect]
     Active Substance: SACUBITRIL\VALSARTAN
     Indication: Hypertension
     Dosage: 100 MG
     Route: 048
     Dates: start: 20230301, end: 202303

REACTIONS (2)
  - Urine output decreased [Not Recovered/Not Resolved]
  - Oedema [Unknown]

NARRATIVE: CASE EVENT DATE: 20230301
